FAERS Safety Report 8165330-9 (Version None)
Quarter: 2012Q1

REPORT INFORMATION
  Report Type: 
  Country: None (occurrence: None)
  Receive Date: 20120227
  Receipt Date: 20120213
  Transmission Date: 20120608
  Serious: Yes (Hospitalization)
  Sender: FDA-Public Use
  Company Number: US-JNJFOC-20120206923

PATIENT
  Sex: Female
  Weight: 83.46 kg

DRUGS (12)
  1. PRISTIQ [Concomitant]
     Indication: DEPRESSION
     Route: 048
     Dates: start: 20100101
  2. ACIPHEX [Concomitant]
     Indication: GASTROOESOPHAGEAL REFLUX DISEASE
     Route: 048
     Dates: start: 20020101
  3. FOLIC ACID [Concomitant]
     Indication: ARTHRITIS
     Route: 048
     Dates: start: 20020101
  4. SINGULAIR [Concomitant]
     Indication: MULTIPLE ALLERGIES
     Route: 048
     Dates: start: 20020101
  5. REMICADE [Suspect]
     Indication: RHEUMATOID ARTHRITIS
     Route: 042
  6. XANAX [Concomitant]
     Indication: PANIC ATTACK
     Route: 048
     Dates: start: 20050101
  7. VENTOLIN HFA [Concomitant]
     Indication: MULTIPLE ALLERGIES
     Route: 048
     Dates: start: 19970101
  8. LEVOTHYROXINE SODIUM [Concomitant]
     Indication: HYPOTHYROIDISM
     Route: 048
     Dates: start: 20020101
  9. METHOTREXATE [Concomitant]
     Dosage: 8 TABS
     Route: 048
     Dates: start: 20020101
  10. METOPROLOL [Suspect]
     Indication: CARDIAC DISORDER
     Route: 048
     Dates: start: 20110101, end: 20110101
  11. VERAPAMIL [Concomitant]
     Indication: HYPERTENSION
     Route: 048
     Dates: start: 19970101
  12. QVAR 40 [Concomitant]
     Indication: MULTIPLE ALLERGIES
     Route: 048
     Dates: start: 19970101

REACTIONS (6)
  - EXOSTOSIS [None]
  - NASOPHARYNGITIS [None]
  - OSTEOARTHRITIS [None]
  - TREMOR [None]
  - MALAISE [None]
  - CARDIAC DISORDER [None]
